FAERS Safety Report 4748628-3 (Version None)
Quarter: 2005Q3

REPORT INFORMATION
  Report Type: 
  Country: None (occurrence: None)
  Receive Date: 20050819
  Receipt Date: 20050722
  Transmission Date: 20060218
  Serious: Yes (Other)
  Sender: FDA-Public Use
  Company Number: JP-RB-1898-2005

PATIENT
  Age: 2 Year
  Sex: Female

DRUGS (9)
  1. BUPRENORPHINE HCL [Suspect]
     Indication: SEDATIVE THERAPY
     Dosage: DOSE UNKNOWNROUTE = INJECTION
     Route: 065
  2. MIDAZOLAM HCL [Suspect]
     Indication: SEDATIVE THERAPY
     Dosage: UNKNOWN DOSAGE
     Route: 042
     Dates: start: 20041124, end: 20041212
  3. MIDAZOLAM HCL [Suspect]
     Dosage: UNKNOWN DOSAGE
     Route: 042
     Dates: start: 20041213, end: 20041217
  4. MIDAZOLAM HCL [Suspect]
     Dosage: UNKNOWN DOSAGE
     Route: 042
     Dates: start: 20041218
  5. VECURONIUM BROMIDE [Concomitant]
     Indication: SEDATIVE THERAPY
     Dosage: UNKNOWN DOSAGE
     Route: 042
     Dates: start: 20041124, end: 20041217
  6. MEDICINALPRODUCT NOT SPECIFIED BY SENDER [Concomitant]
     Indication: CARDIAC FAILURE
     Dosage: UNKNOWN DOSAGE
     Route: 042
     Dates: start: 20041124, end: 20041217
  7. DOPAMINE HCL [Concomitant]
     Indication: CARDIAC FAILURE
     Dosage: UNKNOWN DOSAGE
     Route: 042
     Dates: start: 20041218
  8. DOBUTAMINE HCL [Concomitant]
     Indication: CARDIAC FAILURE
     Dosage: UNKNOWN DOSAGE
     Route: 042
     Dates: start: 20041218
  9. LIDOCAINE [Concomitant]
     Indication: ARRHYTHMIA
     Dosage: UNKNOWN DOSAGE
     Route: 042
     Dates: start: 20041218

REACTIONS (4)
  - CARDIOMYOPATHY [None]
  - DRUG WITHDRAWAL SYNDROME [None]
  - HYPERHIDROSIS [None]
  - TACHYCARDIA [None]
